FAERS Safety Report 22219104 (Version 1)
Quarter: 2023Q2

REPORT INFORMATION
  Report Type: Spontaneous
  Country: US (occurrence: None)
  Receive Date: 20230414
  Receipt Date: 20230414
  Transmission Date: 20230722
  Serious: No
  Sender: FDA-Public Use
  Company Number: None

PATIENT
  Age: 37 Year
  Sex: Male

DRUGS (1)
  1. HUMIRA [Suspect]
     Active Substance: ADALIMUMAB
     Indication: Colitis ulcerative
     Dosage: FREQUENCY : WEEKLY;?
     Route: 058
     Dates: start: 20170201

REACTIONS (5)
  - Injection site induration [None]
  - Injection site bruising [None]
  - Abscess [None]
  - Hair disorder [None]
  - Rash pustular [None]

NARRATIVE: CASE EVENT DATE: 20230410
